FAERS Safety Report 4680104-9 (Version None)
Quarter: 2005Q2

REPORT INFORMATION
  Report Type: 
  Country: None (occurrence: None)
  Receive Date: 20050602
  Receipt Date: 20050519
  Transmission Date: 20051028
  Serious: Yes (Hospitalization)
  Sender: FDA-Public Use
  Company Number: US-JNJFOC-20050600380

PATIENT
  Sex: Female
  Weight: 55.79 kg

DRUGS (12)
  1. MOTRIN [Suspect]
  2. MOTRIN [Suspect]
     Indication: OSTEOARTHRITIS
  3. BEXTRA [Suspect]
  4. BEXTRA [Suspect]
     Indication: OSTEOARTHRITIS
  5. VIOXX [Suspect]
  6. VIOXX [Suspect]
     Indication: OSTEOARTHRITIS
  7. ADVIL [Suspect]
  8. ADVIL [Suspect]
     Indication: OSTEOARTHRITIS
  9. ALEVE [Suspect]
  10. ALEVE [Suspect]
     Indication: OSTEOARTHRITIS
  11. LEVOXYL [Concomitant]
     Route: 049
  12. THYROID TAB [Concomitant]
     Route: 049

REACTIONS (10)
  - BODY HEIGHT DECREASED [None]
  - CONSTIPATION [None]
  - DIZZINESS [None]
  - DRUG INEFFECTIVE [None]
  - GASTRITIS [None]
  - MUSCLE SPASMS [None]
  - NAUSEA [None]
  - PARALYSIS [None]
  - PRURITUS [None]
  - SOMNOLENCE [None]
